FAERS Safety Report 15056495 (Version 4)
Quarter: 2020Q3

REPORT INFORMATION
  Report Type: Spontaneous
  Country: NL (occurrence: NL)
  Receive Date: 20180623
  Receipt Date: 20200729
  Transmission Date: 20201102
  Serious: Yes (Hospitalization)
  Sender: FDA-Public Use
  Company Number: NL-ACCORD-068654

PATIENT
  Age: 73 Year
  Sex: Female

DRUGS (11)
  1. HYDRALAZINE [Suspect]
     Active Substance: HYDRALAZINE HYDROCHLORIDE
     Indication: HYPERTENSION
     Dosage: 3D1T
     Dates: end: 201710
  2. XARELTO [Concomitant]
     Active Substance: RIVAROXABAN
     Dosage: STRENGTH: 20 MG
  3. OMEPRAZOL?CAPSULE?MSR [Concomitant]
     Dosage: STRENGTH 40MG
  4. SPIRONOLACTONE. [Suspect]
     Active Substance: SPIRONOLACTONE
     Indication: HYPERTENSION
     Dosage: 1D1T, STRENGTH: 12.5 MG
     Dates: end: 201710
  5. HYDROCHLOROTHIAZIDE. [Suspect]
     Active Substance: HYDROCHLOROTHIAZIDE
     Indication: HYPERTENSION
     Dosage: 1D1T
     Dates: end: 201710
  6. METOPROLOL. [Suspect]
     Active Substance: METOPROLOL
     Indication: ARRHYTHMIA
     Dosage: YOU CAN INDICATE BELOW WHAT HAPPENED: STARTING YEAR NOT KNOWN(1D1T)
  7. HYDROXYCARBAMIDE [Concomitant]
     Active Substance: HYDROXYUREA
  8. SPIRONOLACTONE. [Suspect]
     Active Substance: SPIRONOLACTONE
     Indication: HYPERTENSION
     Dosage: 1D1T, STRENGTH: 12.5 MG
     Dates: end: 201710
  9. HYDROCHLOROTHIAZIDE/VALSARTAN [Suspect]
     Active Substance: HYDROCHLOROTHIAZIDE\VALSARTAN
     Indication: HYPERTENSION
     Dosage: 1D1T
     Dates: end: 201710
  10. OMEPRAZOLE. [Concomitant]
     Active Substance: OMEPRAZOLE
     Dosage: STRENGTH: 40 MG
  11. HYDROCHLOROTHIAZIDE. [Suspect]
     Active Substance: HYDROCHLOROTHIAZIDE
     Indication: HYPERTENSION
     Dosage: 1D1T
     Dates: end: 201710

REACTIONS (2)
  - Chillblains [Recovered/Resolved with Sequelae]
  - Toe amputation [Recovered/Resolved with Sequelae]

NARRATIVE: CASE EVENT DATE: 20160811
